FAERS Safety Report 4546913-1 (Version None)
Quarter: 2005Q1

REPORT INFORMATION
  Report Type: 
  Country: None (occurrence: None)
  Receive Date: 20050105
  Receipt Date: 20041220
  Transmission Date: 20050727
  Serious: Yes (Hospitalization)
  Sender: FDA-Public Use
  Company Number: WAES 0412KOR00011

PATIENT
  Age: 57 Year
  Sex: Male

DRUGS (6)
  1. COZAAR [Suspect]
     Indication: CARDIAC FAILURE CONGESTIVE
     Dosage: PO
     Route: 048
     Dates: start: 20041022
  2. ALLOPURINOL [Concomitant]
  3. CARVEDILOL [Concomitant]
  4. FUROSEMIDE [Concomitant]
  5. SPIRONOLACTONE [Concomitant]
  6. THIAMINE [Concomitant]

REACTIONS (6)
  - ATELECTASIS [None]
  - ATRIAL FIBRILLATION [None]
  - COUGH [None]
  - HAEMOPTYSIS [None]
  - ORTHOPNOEA [None]
  - WHEEZING [None]
